FAERS Safety Report 21338756 (Version 1)
Quarter: 2022Q3

REPORT INFORMATION
  Report Type: Spontaneous
  Country: US (occurrence: US)
  Receive Date: 20220915
  Receipt Date: 20220915
  Transmission Date: 20221027
  Serious: Yes (Death, Other)
  Sender: FDA-Public Use
  Company Number: US-CELGENE-USA-20190809759

PATIENT
  Age: 74 Year
  Sex: Female
  Weight: 53.9 kg

DRUGS (3)
  1. POMALYST [Suspect]
     Active Substance: POMALIDOMIDE
     Indication: Plasma cell myeloma
     Dosage: 4 MILLIGRAM
     Route: 048
     Dates: start: 20190305
  2. POMALYST [Suspect]
     Active Substance: POMALIDOMIDE
     Indication: Pulmonary arterial hypertension
     Dosage: 4 MILLIGRAM
     Route: 048
     Dates: start: 201908
  3. POMALYST [Suspect]
     Active Substance: POMALIDOMIDE
     Dosage: DAILY FOR 21DAYS
     Route: 048
     Dates: start: 20210401, end: 20220818

REACTIONS (1)
  - Death [Fatal]

NARRATIVE: CASE EVENT DATE: 20220819
